FAERS Safety Report 7347470-7 (Version None)
Quarter: 2011Q1

REPORT INFORMATION
  Report Type: 
  Country: None (occurrence: None)
  Receive Date: 20110311
  Receipt Date: 20110301
  Transmission Date: 20110831
  Serious: Yes (Other)
  Sender: FDA-Public Use
  Company Number: US-CELGENEUS-163-21880-11012234

PATIENT
  Sex: Male

DRUGS (12)
  1. ALPHAGAN [Concomitant]
     Dosage: 0.1%
     Route: 047
     Dates: start: 20091117
  2. SPIRONOLACTONE [Concomitant]
     Dosage: 25 MILLIGRAM
     Route: 048
     Dates: start: 20091001
  3. SLOW FE [Concomitant]
     Dosage: 160MG(50FE)
     Route: 048
     Dates: start: 20100504
  4. HYDROCODONE-ACETAMINOPHEN [Concomitant]
     Dosage: 5-325MG
     Route: 048
     Dates: start: 20110215
  5. TIMOLOL [Concomitant]
     Dosage: 0.5%
     Route: 047
     Dates: start: 20091117
  6. DEXAMETHASONE [Concomitant]
     Dosage: 5
     Route: 048
     Dates: start: 20100506
  7. REVLIMID [Suspect]
     Indication: MULTIPLE MYELOMA
     Dosage: 25 MILLIGRAM
     Route: 048
     Dates: start: 20100506
  8. LISINOPRIL [Concomitant]
     Dosage: 5 MILLIGRAM
     Route: 048
     Dates: start: 20100916
  9. VITAMIN D [Concomitant]
     Dosage: 1000 UNIT
     Route: 048
     Dates: start: 20091104
  10. ASPIRIN [Concomitant]
     Dosage: 325 MILLIGRAM
     Route: 048
     Dates: start: 20091001
  11. CARVEDILOL [Concomitant]
     Dosage: 3.125 MILLIGRAM
     Route: 048
     Dates: start: 20100916
  12. TRAVATAN [Concomitant]
     Dosage: 0.004%
     Route: 047
     Dates: start: 20091117

REACTIONS (3)
  - CONSTIPATION [None]
  - INGUINAL HERNIA [None]
  - ANAEMIA [None]
